FAERS Safety Report 8619597-0 (Version None)
Quarter: 2012Q3

REPORT INFORMATION
  Report Type: 
  Country: None (occurrence: None)
  Receive Date: 20120824
  Receipt Date: 20120824
  Transmission Date: 20120928
  Serious: Yes (Death, Other)
  Sender: FDA-Public Use
  Company Number: PHHY2012AU069840

PATIENT
  Sex: Female

DRUGS (5)
  1. ZOLEDRONOC ACID [Suspect]
     Indication: OSTEOPOROSIS
     Dosage: 5 MG,
     Route: 042
     Dates: start: 20110801
  2. LATANOPROST [Concomitant]
     Indication: GLAUCOMA
     Route: 047
  3. ZOLEDRONOC ACID [Suspect]
     Dosage: 5 MG,
     Route: 042
     Dates: start: 20120806
  4. ASPIRIN [Concomitant]
     Indication: GLAUCOMA
     Dosage: 100 MG, QD
     Route: 048
  5. ANTIARRHYTHMICS [Concomitant]

REACTIONS (3)
  - CEREBROVASCULAR ACCIDENT [None]
  - DYSPNOEA [None]
  - COGNITIVE DISORDER [None]
